FAERS Safety Report 13453056 (Version 1)
Quarter: 2017Q2

REPORT INFORMATION
  Report Type: Spontaneous
  Country: US (occurrence: US)
  Receive Date: 20170418
  Receipt Date: 20170418
  Transmission Date: 20170830
  Serious: Yes (Death)
  Sender: FDA-Public Use
  Company Number: US-PFIZER INC-2017165594

PATIENT
  Age: 17 Year
  Sex: Female

DRUGS (1)
  1. LYRICA [Suspect]
     Active Substance: PREGABALIN
     Indication: EPILEPSY

REACTIONS (3)
  - Product use in unapproved indication [Unknown]
  - Respiratory failure [Fatal]
  - Pneumonia [Fatal]
